FAERS Safety Report 25289843 (Version 1)
Quarter: 2025Q2

REPORT INFORMATION
  Report Type: Spontaneous
  Country: ES (occurrence: ES)
  Receive Date: 20250509
  Receipt Date: 20250509
  Transmission Date: 20250716
  Serious: Yes (Hospitalization)
  Sender: MYLAN
  Company Number: None

PATIENT
  Age: 61 Year
  Sex: Female

DRUGS (16)
  1. SERTRALINE [Interacting]
     Active Substance: SERTRALINE HYDROCHLORIDE
     Indication: Bipolar disorder
     Dosage: 150 MILLIGRAM, QD
     Dates: start: 20240613, end: 20240731
  2. SERTRALINE [Interacting]
     Active Substance: SERTRALINE HYDROCHLORIDE
     Dosage: 150 MILLIGRAM, QD
     Route: 048
     Dates: start: 20240613, end: 20240731
  3. SERTRALINE [Interacting]
     Active Substance: SERTRALINE HYDROCHLORIDE
     Dosage: 150 MILLIGRAM, QD
     Route: 048
     Dates: start: 20240613, end: 20240731
  4. SERTRALINE [Interacting]
     Active Substance: SERTRALINE HYDROCHLORIDE
     Dosage: 150 MILLIGRAM, QD
     Dates: start: 20240613, end: 20240731
  5. VALPROATE SODIUM [Interacting]
     Active Substance: VALPROATE SODIUM
     Indication: Bipolar disorder
     Dosage: 1 DOSAGE FORM, BID (1 TABLET EVERY 12 HOURS) (20 TABLETS)
     Dates: start: 20240710, end: 20240731
  6. VALPROATE SODIUM [Interacting]
     Active Substance: VALPROATE SODIUM
     Dosage: 1 DOSAGE FORM, BID (1 TABLET EVERY 12 HOURS) (20 TABLETS)
     Route: 048
     Dates: start: 20240710, end: 20240731
  7. VALPROATE SODIUM [Interacting]
     Active Substance: VALPROATE SODIUM
     Dosage: 1 DOSAGE FORM, BID (1 TABLET EVERY 12 HOURS) (20 TABLETS)
     Route: 048
     Dates: start: 20240710, end: 20240731
  8. VALPROATE SODIUM [Interacting]
     Active Substance: VALPROATE SODIUM
     Dosage: 1 DOSAGE FORM, BID (1 TABLET EVERY 12 HOURS) (20 TABLETS)
     Dates: start: 20240710, end: 20240731
  9. Plenur [Concomitant]
     Indication: Bipolar disorder
     Dosage: 2 DOSAGE FORM, QD (2 TABLETS DINNER) (400 MG MODIFIED-RELEASE TABLETS, 100 TABLETS)
     Dates: start: 20240603, end: 20240609
  10. Plenur [Concomitant]
     Dosage: 2 DOSAGE FORM, QD (2 TABLETS DINNER) (400 MG MODIFIED-RELEASE TABLETS, 100 TABLETS)
     Route: 048
     Dates: start: 20240603, end: 20240609
  11. Plenur [Concomitant]
     Dosage: 2 DOSAGE FORM, QD (2 TABLETS DINNER) (400 MG MODIFIED-RELEASE TABLETS, 100 TABLETS)
     Route: 048
     Dates: start: 20240603, end: 20240609
  12. Plenur [Concomitant]
     Dosage: 2 DOSAGE FORM, QD (2 TABLETS DINNER) (400 MG MODIFIED-RELEASE TABLETS, 100 TABLETS)
     Dates: start: 20240603, end: 20240609
  13. LEVOTHYROXINE SODIUM [Concomitant]
     Active Substance: LEVOTHYROXINE SODIUM
     Indication: Hypothyroidism
  14. LEVOTHYROXINE SODIUM [Concomitant]
     Active Substance: LEVOTHYROXINE SODIUM
     Route: 065
  15. LEVOTHYROXINE SODIUM [Concomitant]
     Active Substance: LEVOTHYROXINE SODIUM
     Route: 065
  16. LEVOTHYROXINE SODIUM [Concomitant]
     Active Substance: LEVOTHYROXINE SODIUM

REACTIONS (2)
  - Inappropriate antidiuretic hormone secretion [Recovered/Resolved]
  - Drug interaction [Unknown]

NARRATIVE: CASE EVENT DATE: 20240730
